FAERS Safety Report 11901857 (Version 4)
Quarter: 2017Q2

REPORT INFORMATION
  Report Type: Spontaneous
  Country: FR (occurrence: FR)
  Receive Date: 20160108
  Receipt Date: 20170621
  Transmission Date: 20170829
  Serious: Yes (Hospitalization)
  Sender: FDA-Public Use
  Company Number: FR-PFIZER INC-2015451705

PATIENT
  Age: 65 Year
  Sex: Female

DRUGS (4)
  1. NOVATREX NOS [Suspect]
     Active Substance: AZITHROMYCIN OR METHOTREXATE SODIUM
     Indication: RHEUMATOID ARTHRITIS
     Dosage: 1 DF, WEEKLY
     Route: 048
     Dates: start: 2001, end: 20160701
  2. TENORMIN [Suspect]
     Active Substance: ATENOLOL
     Indication: HYPERTENSION
     Dosage: 1 DF, ONCE DAILY
     Route: 048
     Dates: start: 2003
  3. REMICADE [Suspect]
     Active Substance: INFLIXIMAB
     Indication: RHEUMATOID ARTHRITIS
     Dosage: 250 MG, 1 INJECTION EVERY 10 WEEKS
     Route: 042
     Dates: start: 2001, end: 201511
  4. SPECIAFOLDINE [Suspect]
     Active Substance: FOLIC ACID
     Dosage: 1 MG, WEEKLY
     Route: 048
     Dates: start: 2001

REACTIONS (3)
  - Hemiparesis [Recovered/Resolved]
  - Myelitis transverse [Recovered/Resolved]
  - Paraesthesia [Recovered/Resolved]

NARRATIVE: CASE EVENT DATE: 201508
